FAERS Safety Report 17946238 (Version 7)
Quarter: 2021Q2

REPORT INFORMATION
  Report Type: Spontaneous
  Country: US (occurrence: US)
  Receive Date: 20200626
  Receipt Date: 20210413
  Transmission Date: 20210717
  Serious: Yes (Other)
  Sender: FDA-Public Use
  Company Number: US-GILEAD-2020-0476455

PATIENT
  Age: 42 Year
  Sex: Male
  Weight: 57.14 kg

DRUGS (53)
  1. DIAMOX SEQUELS [Concomitant]
     Active Substance: ACETAZOLAMIDE
  2. DORAFEM [Concomitant]
     Active Substance: DOMPERIDONE\RABEPRAZOLE
  3. GANCICLOVIR. [Concomitant]
     Active Substance: GANCICLOVIR
  4. INDINAVIR [Concomitant]
     Active Substance: INDINAVIR
  5. TRUVADA [Suspect]
     Active Substance: EMTRICITABINE\TENOFOVIR DISOPROXIL FUMARATE
     Indication: HIV INFECTION
     Dosage: UNK
     Route: 048
     Dates: start: 201203, end: 2017
  6. DEPAKOTE [Concomitant]
     Active Substance: DIVALPROEX SODIUM
  7. FLEET LAXATIVE [Concomitant]
  8. LEVOTHYROXINE. [Concomitant]
     Active Substance: LEVOTHYROXINE
  9. PENICILLIN [PENICILLIN NOS] [Concomitant]
     Active Substance: PENICILLIN
  10. TACROLIMUS. [Concomitant]
     Active Substance: TACROLIMUS
  11. TRIAMCINOLONE [Concomitant]
     Active Substance: TRIAMCINOLONE
  12. HYDROCODONE [Concomitant]
     Active Substance: HYDROCODONE
     Dosage: UNK
     Dates: start: 2011
  13. REYATAZ [Concomitant]
     Active Substance: ATAZANAVIR SULFATE
     Indication: HIV INFECTION
     Dosage: UNK
     Dates: start: 2010, end: 2012
  14. ISENTRESS [Concomitant]
     Active Substance: RALTEGRAVIR POTASSIUM
     Dosage: UNK
     Dates: start: 2014, end: 2017
  15. ACETAMINOPHEN. [Concomitant]
     Active Substance: ACETAMINOPHEN
  16. CORTISONE [Concomitant]
     Active Substance: CORTISONE
  17. DYAZIDE [Concomitant]
     Active Substance: HYDROCHLOROTHIAZIDE\TRIAMTERENE
  18. EDECRIN [ETACRYNATE SODIUM] [Concomitant]
  19. FLOMAX [Concomitant]
     Active Substance: TAMSULOSIN HYDROCHLORIDE
  20. LASIX [Concomitant]
     Active Substance: FUROSEMIDE
  21. AMPICILLIN [Concomitant]
     Active Substance: AMPICILLIN
  22. BACTRIM [Concomitant]
     Active Substance: SULFAMETHOXAZOLE\TRIMETHOPRIM
  23. METHOTREXATE. [Concomitant]
     Active Substance: METHOTREXATE
  24. PRAVASTATIN. [Concomitant]
     Active Substance: PRAVASTATIN
  25. SIMVASTATIN. [Concomitant]
     Active Substance: SIMVASTATIN
  26. WARFARIN [Concomitant]
     Active Substance: WARFARIN
  27. AMOXICILLIN. [Concomitant]
     Active Substance: AMOXICILLIN
  28. CELEBREX [Concomitant]
     Active Substance: CELECOXIB
  29. CRESTOR [Concomitant]
     Active Substance: ROSUVASTATIN CALCIUM
  30. DEXLANSOPRAZOLE [Concomitant]
     Active Substance: DEXLANSOPRAZOLE
  31. ESOMEPRAZOLE. [Concomitant]
     Active Substance: ESOMEPRAZOLE MAGNESIUM
  32. LISINOPRIL. [Concomitant]
     Active Substance: LISINOPRIL
     Dosage: UNK
     Dates: start: 2010, end: 2014
  33. MECLIZINE [Concomitant]
     Active Substance: MECLIZINE HYDROCHLORIDE
     Dosage: UNK
     Dates: start: 201401
  34. AZITHROMYCIN ANHYDROUS. [Concomitant]
     Active Substance: AZITHROMYCIN ANHYDROUS
     Dosage: UNK
     Dates: start: 2012, end: 2013
  35. VIREAD [Suspect]
     Active Substance: TENOFOVIR DISOPROXIL FUMARATE
     Indication: HIV INFECTION
     Dosage: UNK
     Route: 048
     Dates: start: 200110, end: 201202
  36. ALENDRONATE [Concomitant]
     Active Substance: ALENDRONATE SODIUM
  37. DEMADEX [Concomitant]
     Active Substance: TORSEMIDE
  38. GLYBURIDE. [Concomitant]
     Active Substance: GLYBURIDE
  39. HEPARIN [Concomitant]
     Active Substance: HEPARIN SODIUM
  40. LOVENOX [LEVOFLOXACIN] [Concomitant]
     Active Substance: LEVOFLOXACIN
  41. APTIVUS [Concomitant]
     Active Substance: TIPRANAVIR
  42. MOBIC [Concomitant]
     Active Substance: MELOXICAM
     Dosage: UNK
     Dates: start: 2014
  43. ZIDOVUDINE. [Concomitant]
     Active Substance: ZIDOVUDINE
     Indication: HIV INFECTION
     Dosage: UNK
     Dates: start: 2006, end: 2012
  44. DIURIL [CHLOROTHIAZIDE SODIUM] [Concomitant]
  45. TETRACYCLINE [Concomitant]
     Active Substance: TETRACYCLINE
  46. HYDROCHLOROTHIAZIDE. [Concomitant]
     Active Substance: HYDROCHLOROTHIAZIDE
     Dosage: UNK
     Dates: start: 2013, end: 2014
  47. SELZENTRY [Concomitant]
     Active Substance: MARAVIROC
     Dosage: UNK
     Dates: start: 2014, end: 2017
  48. BUMEX [Concomitant]
     Active Substance: BUMETANIDE
  49. MEDROXYPROGESTERONE ACETATE. [Concomitant]
     Active Substance: MEDROXYPROGESTERONE ACETATE
  50. PREDNISOLONE. [Concomitant]
     Active Substance: PREDNISOLONE
  51. VANCOMYCIN [Concomitant]
     Active Substance: VANCOMYCIN
  52. RETROVIR [Concomitant]
     Active Substance: ZIDOVUDINE
     Indication: HIV INFECTION
     Dosage: UNK
     Dates: start: 2006, end: 2012
  53. SODIUM BICARBONATE. [Concomitant]
     Active Substance: SODIUM BICARBONATE
     Dosage: UNK
     Dates: start: 201401

REACTIONS (33)
  - Spinal fracture [Not Recovered/Not Resolved]
  - Multiple fractures [Unknown]
  - Renal failure [Unknown]
  - Bone density decreased [Unknown]
  - Tooth loss [Unknown]
  - Muscle atrophy [Unknown]
  - Insomnia [Unknown]
  - Osteomalacia [Recovered/Resolved]
  - Chronic kidney disease [Not Recovered/Not Resolved]
  - Spinal compression fracture [Unknown]
  - Cataract [Unknown]
  - Depression [Not Recovered/Not Resolved]
  - Emotional distress [Unknown]
  - Decreased appetite [Unknown]
  - Osteoarthritis [Unknown]
  - Diarrhoea [Unknown]
  - Rib fracture [Recovered/Resolved]
  - Osteoporosis [Not Recovered/Not Resolved]
  - Acute kidney injury [Unknown]
  - Arthritis [Unknown]
  - Hernia [Unknown]
  - Nightmare [Unknown]
  - Confusional state [Unknown]
  - Osteonecrosis [Recovered/Resolved]
  - Nephrolithiasis [Not Recovered/Not Resolved]
  - Fanconi syndrome acquired [Unknown]
  - Bone loss [Not Recovered/Not Resolved]
  - Muscular weakness [Unknown]
  - Lipodystrophy acquired [Unknown]
  - Flatulence [Unknown]
  - Pathological fracture [Unknown]
  - Pain [Unknown]
  - Asthenia [Unknown]

NARRATIVE: CASE EVENT DATE: 20080807
